FAERS Safety Report 8014844-0 (Version None)
Quarter: 2011Q4

REPORT INFORMATION
  Report Type: 
  Country: None (occurrence: None)
  Receive Date: 20111229
  Receipt Date: 20111221
  Transmission Date: 20120403
  Serious: Yes (Death, Hospitalization)
  Sender: FDA-Public Use
  Company Number: US-ALLERGAN-1116822US

PATIENT
  Age: 35 Year
  Sex: Male

DRUGS (1)
  1. BOTULINUM TOXIN TYPE A [Suspect]
     Indication: HYPERTONIC BLADDER
     Dosage: UNK
     Dates: start: 20111020, end: 20111020

REACTIONS (8)
  - FATIGUE [None]
  - DYSPNOEA [None]
  - PNEUMONIA [None]
  - DIZZINESS [None]
  - TREMOR [None]
  - INFLUENZA LIKE ILLNESS [None]
  - CONSTIPATION [None]
  - RESPIRATORY FAILURE [None]
